FAERS Safety Report 5019709-4 (Version None)
Quarter: 2006Q2

REPORT INFORMATION
  Report Type: 
  Country: None (occurrence: None)
  Receive Date: 20060601
  Receipt Date: 20060522
  Transmission Date: 20061013
  Serious: Yes (Death, Hospitalization)
  Sender: FDA-Public Use
  Company Number: 2004-08-0963

PATIENT
  Age: 66 Year
  Sex: Male
  Weight: 50 kg

DRUGS (7)
  1. REBETOL [Suspect]
     Indication: HEPATITIS C
     Dosage: 600 MG ORAL
     Route: 048
     Dates: start: 20040419, end: 20040513
  2. INTRON A [Suspect]
     Indication: HEPATITIS C
     Dosage: SEE IMAGE
     Route: 030
     Dates: start: 20040419, end: 20040502
  3. INTRON A [Suspect]
     Indication: HEPATITIS C
     Dosage: SEE IMAGE
     Route: 030
     Dates: start: 20040419, end: 20040816
  4. INTRON A [Suspect]
     Indication: HEPATITIS C
     Dosage: SEE IMAGE
     Route: 030
     Dates: start: 20040503, end: 20040816
  5. HERBESSER [Concomitant]
  6. PROMAC (POLAPREZINC) [Concomitant]
  7. LOXONIN [Concomitant]

REACTIONS (7)
  - CHRONIC RESPIRATORY FAILURE [None]
  - DYSPNOEA [None]
  - INTERSTITIAL LUNG DISEASE [None]
  - PNEUMONIA [None]
  - PYREXIA [None]
  - RASH [None]
  - RESPIRATORY FAILURE [None]
